FAERS Safety Report 13583802 (Version 2)
Quarter: 2018Q1

REPORT INFORMATION
  Report Type: Report from Study
  Country: US (occurrence: US)
  Receive Date: 20170526
  Receipt Date: 20180319
  Transmission Date: 20180508
  Serious: No
  Sender: FDA-Public Use
  Company Number: PHEH2017US014706

PATIENT
  Sex: Male

DRUGS (2)
  1. COSENTYX [Suspect]
     Active Substance: SECUKINUMAB
     Indication: PSORIATIC ARTHROPATHY
     Dosage: 300 UNK, UNK
     Route: 058
  2. COSENTYX [Suspect]
     Active Substance: SECUKINUMAB
     Indication: PSORIASIS
     Dosage: 150 MG, QMO (EVERY 4 WEEKS)
     Route: 058
     Dates: start: 201701

REACTIONS (8)
  - Insomnia [Unknown]
  - Intervertebral disc disorder [Unknown]
  - Drug ineffective [Unknown]
  - Arthralgia [Unknown]
  - Skin discolouration [Unknown]
  - Joint swelling [Unknown]
  - Psoriasis [Unknown]
  - Burning sensation [Unknown]
